FAERS Safety Report 8911932 (Version 1)
Quarter: 2012Q4

REPORT INFORMATION
  Report Type: 
  Country: US (occurrence: US)
  Receive Date: 20121116
  Receipt Date: 20121116
  Transmission Date: 20130627
  Serious: No
  Sender: FDA-Public Use
  Company Number: US-PFIZER INC-2012283909

PATIENT
  Age: 51 Year
  Sex: Male

DRUGS (13)
  1. INLYTA [Suspect]
     Indication: CARCINOMA KIDNEY
     Dosage: 5 mg, UNK
  2. LEVOTHYROXINE SODIUM [Concomitant]
     Dosage: UNK
  3. B COMPLEX [Concomitant]
     Dosage: UNK
  4. FUROSEMIDE [Concomitant]
     Dosage: UNK
  5. CO-Q-10 [Concomitant]
     Dosage: UNK
  6. SERTRALINE HYDROCHLORIDE [Concomitant]
     Dosage: UNK
  7. ZOFRAN [Concomitant]
     Dosage: UNK
  8. OXYCONTIN [Concomitant]
     Dosage: UNK
  9. PROCHLORPERAZINE MALEATE [Concomitant]
     Dosage: UNK
  10. METFORMIN HYDROCHLORIDE [Concomitant]
     Dosage: UNK
  11. SOMA [Concomitant]
     Dosage: UNK
  12. MELATONIN [Concomitant]
     Dosage: UNK
  13. OXYCODONE HYDROCHLORIDE [Concomitant]
     Dosage: UNK

REACTIONS (3)
  - Fatigue [Unknown]
  - Nausea [Unknown]
  - Dysphonia [Unknown]
